FAERS Safety Report 24224400 (Version 2)
Quarter: 2024Q4

REPORT INFORMATION
  Report Type: Spontaneous
  Country: US (occurrence: US)
  Receive Date: 20240819
  Receipt Date: 20241001
  Transmission Date: 20250115
  Serious: Yes (Other)
  Sender: Alora Pharma
  Company Number: US-TRIGEN LABORATORIES-2024ALO00398

PATIENT
  Age: 19 Year
  Sex: Female
  Weight: 77.098 kg

DRUGS (2)
  1. METHYLPHENIDATE HYDROCHLORIDE [Suspect]
     Active Substance: METHYLPHENIDATE HYDROCHLORIDE
     Indication: Attention deficit hyperactivity disorder
     Dosage: 36 MG, 1X/DAY (NOT TAKEN EVERY DAY IN SUMMER)
     Route: 048
     Dates: start: 202402, end: 2024
  2. METHYLPHENIDATE HYDROCHLORIDE [Suspect]
     Active Substance: METHYLPHENIDATE HYDROCHLORIDE
     Dosage: 36 MG, 1X/DAY IN THE MORNING (NOT TAKEN EVERY DAY IN SUMMER)
     Route: 048
     Dates: start: 2024, end: 20240726

REACTIONS (9)
  - Loss of consciousness [Recovered/Resolved]
  - Foot fracture [Recovered/Resolved]
  - Fall [Recovered/Resolved]
  - Visual brightness [Recovered/Resolved]
  - Head injury [Recovered/Resolved]
  - Tinnitus [Recovered/Resolved]
  - Dizziness [Recovered/Resolved]
  - Disorientation [Recovered/Resolved]
  - Headache [Unknown]

NARRATIVE: CASE EVENT DATE: 20240726
